FAERS Safety Report 14366642 (Version 2)
Quarter: 2018Q2

REPORT INFORMATION
  Report Type: Report from Study
  Country: DE (occurrence: DE)
  Receive Date: 20180109
  Receipt Date: 20180504
  Transmission Date: 20180711
  Serious: Yes (Death)
  Sender: FDA-Public Use
  Company Number: DE-ACTELION-A-CH2017-163700

PATIENT
  Age: 45 Year
  Sex: Female

DRUGS (11)
  1. OPSUMIT [Concomitant]
     Active Substance: MACITENTAN
     Dosage: UNK
     Dates: start: 201504
  2. KALINOR (POTASSIUM CHLORIDE) [Concomitant]
     Active Substance: POTASSIUM CHLORIDE
     Dosage: AS NEEDED
     Dates: end: 20171229
  3. TORAGAMMA [Concomitant]
     Dosage: 10 MG, BID
     Dates: end: 20171230
  4. UPTRAVI [Suspect]
     Active Substance: SELEXIPAG
     Indication: PULMONARY ARTERIAL HYPERTENSION
     Dosage: 400 ?G, BID
     Route: 048
     Dates: start: 20171128, end: 20171230
  5. CLEVER [Concomitant]
     Dosage: 200 MG, BID
     Dates: start: 201704
  6. VENTAVIS [Concomitant]
     Active Substance: ILOPROST
     Route: 045
  7. IMATINIB [Concomitant]
     Active Substance: IMATINIB
     Dosage: 100 MG, UNK
     Dates: start: 201710, end: 20171231
  8. SPIRONOLACTON [Concomitant]
     Active Substance: SPIRONOLACTONE
     Dosage: 50 MG, QD
     Dates: end: 20171230
  9. REVATIO [Concomitant]
     Active Substance: SILDENAFIL CITRATE
     Dosage: 50 UNK, TID
     Dates: start: 20010201
  10. UPTRAVI [Suspect]
     Active Substance: SELEXIPAG
     Dosage: UNK
     Route: 048
     Dates: start: 20171102
  11. TORASEMID [Concomitant]
     Active Substance: TORSEMIDE
     Dosage: AS NEEDED
     Dates: end: 20171230

REACTIONS (6)
  - Nausea [Recovering/Resolving]
  - Pulmonary arterial hypertension [Fatal]
  - Disease progression [Fatal]
  - Syncope [Unknown]
  - Cardiac failure [Fatal]
  - Oral candidiasis [Recovering/Resolving]

NARRATIVE: CASE EVENT DATE: 20171128
